FAERS Safety Report 15072882 (Version 1)
Quarter: 2018Q2

REPORT INFORMATION
  Report Type: Spontaneous
  Country: US (occurrence: US)
  Receive Date: 20180627
  Receipt Date: 20180627
  Transmission Date: 20180711
  Serious: No
  Sender: FDA-Public Use
  Company Number: US-TEVA-2018-US-913363

PATIENT
  Age: 30 Year
  Sex: Female

DRUGS (1)
  1. JUNEL [Suspect]
     Active Substance: ETHINYL ESTRADIOL\NORETHINDRONE ACETATE
     Indication: CONTRACEPTION
     Dosage: NORETHINDRONE W/ETHINYLESTRADIOL : 1/20
     Route: 065
     Dates: start: 201708, end: 20180401

REACTIONS (5)
  - Cystitis interstitial [Recovered/Resolved]
  - Gastrooesophageal reflux disease [Recovered/Resolved]
  - Bladder pain [Recovered/Resolved]
  - Adnexa uteri pain [Recovered/Resolved]
  - Abdominal pain upper [Recovered/Resolved]

NARRATIVE: CASE EVENT DATE: 201711
